FAERS Safety Report 6872201-4 (Version None)
Quarter: 2010Q3

REPORT INFORMATION
  Report Type: 
  Country: None (occurrence: None)
  Receive Date: 20100723
  Receipt Date: 20100226
  Transmission Date: 20110219
  Serious: No
  Sender: FDA-Public Use
  Company Number: A0850062A

PATIENT
  Sex: Female

DRUGS (2)
  1. MYLERAN [Suspect]
     Indication: PRODUCT USED FOR UNKNOWN INDICATION
     Route: 065
  2. MYLICON [Suspect]
     Indication: PRODUCT USED FOR UNKNOWN INDICATION
     Route: 065

REACTIONS (3)
  - DRUG DISPENSING ERROR [None]
  - DRUG NAME CONFUSION [None]
  - WRONG DRUG ADMINISTERED [None]
